FAERS Safety Report 5020988-8 (Version None)
Quarter: 2006Q2

REPORT INFORMATION
  Report Type: 
  Country: None (occurrence: None)
  Receive Date: 20060602
  Receipt Date: 20060523
  Transmission Date: 20061013
  Serious: Yes (Other)
  Sender: FDA-Public Use
  Company Number: CHPA2006US05093

PATIENT
  Age: 46 Year
  Sex: Female
  Weight: 51.2 kg

DRUGS (2)
  1. WALGREE'S (NCH) (NICOTINE)TRANS-THERAPEUTIC-SYSTEM [Suspect]
     Indication: SMOKING CESSATION THERAPY
     Dosage: 21MG, QD; TRANSDERMAL
     Route: 062
     Dates: start: 20060518
  2. DIAZEPAM [Suspect]
     Indication: RESTLESS LEGS SYNDROME
     Dosage: 10 MG, QD,

REACTIONS (2)
  - PHARYNGEAL OEDEMA [None]
  - THROAT TIGHTNESS [None]
